FAERS Safety Report 17809343 (Version 1)
Quarter: 2020Q2

REPORT INFORMATION
  Report Type: Spontaneous
  Country: US (occurrence: US)
  Receive Date: 20200520
  Receipt Date: 20200520
  Transmission Date: 20200714
  Serious: Yes (Hospitalization, Other)
  Sender: FDA-Public Use
  Company Number: NVSC2020US137067

PATIENT
  Age: 22 Year
  Sex: Female

DRUGS (2)
  1. TOBRAMYCIN. [Suspect]
     Active Substance: TOBRAMYCIN
     Indication: BRONCHIECTASIS
     Dosage: 180 MG, QD
     Route: 042
  2. VANCOMYCIN [Suspect]
     Active Substance: VANCOMYCIN
     Indication: BRONCHIECTASIS
     Dosage: 1000 MG, TID
     Route: 042

REACTIONS (7)
  - Oedema peripheral [Unknown]
  - Nausea [Unknown]
  - Nephropathy toxic [Unknown]
  - Product use in unapproved indication [Unknown]
  - Acute kidney injury [Unknown]
  - Decreased appetite [Unknown]
  - Anuria [Unknown]
